FAERS Safety Report 9805230 (Version 1)
Quarter: 2014Q1

REPORT INFORMATION
  Report Type: Spontaneous
  Country: US (occurrence: None)
  Receive Date: 20140107
  Receipt Date: 20140107
  Transmission Date: 20141002
  Serious: Yes (Hospitalization)
  Sender: FDA-Public Use
  Company Number: None

PATIENT
  Age: 75 Year
  Sex: Male
  Weight: 53 kg

DRUGS (2)
  1. VANCOMYCIN [Suspect]
     Indication: PULMONARY MASS
     Dates: start: 20130717, end: 20130717
  2. VANCOMYCIN [Suspect]
     Indication: PNEUMONIA
     Route: 042
     Dates: start: 20130716, end: 20130718

REACTIONS (2)
  - Renal failure acute [None]
  - Nephropathy [None]
